FAERS Safety Report 6244417-1 (Version None)
Quarter: 2009Q2

REPORT INFORMATION
  Report Type: 
  Country: None (occurrence: None)
  Receive Date: 20090625
  Receipt Date: 20090615
  Transmission Date: 20091009
  Serious: Yes (Other)
  Sender: FDA-Public Use
  Company Number: NL-BAYER-200923498GPV

PATIENT
  Age: 64 Year
  Sex: Male

DRUGS (3)
  1. NEXAVAR [Suspect]
     Indication: HEPATIC CANCER METASTATIC
     Dosage: TOTAL DAILY DOSE: 400 MG
     Route: 048
     Dates: start: 20090408, end: 20090608
  2. SPIRONOLACTONE [Concomitant]
     Indication: DRUG USE FOR UNKNOWN INDICATION
     Route: 048
  3. FUROSEMIDE [Concomitant]
     Indication: ASCITES
     Route: 048

REACTIONS (1)
  - HEPATIC FUNCTION ABNORMAL [None]
